FAERS Safety Report 22068316 (Version 1)
Quarter: 2023Q1

REPORT INFORMATION
  Report Type: Spontaneous
  Country: US (occurrence: US)
  Receive Date: 20230307
  Receipt Date: 20230307
  Transmission Date: 20230418
  Serious: No
  Sender: FDA-Public Use
  Company Number: US-BRISTOL-MYERS SQUIBB COMPANY-2023-032186

PATIENT
  Age: 74 Year
  Sex: Female
  Weight: 44.45 kg

DRUGS (1)
  1. REVLIMID [Suspect]
     Active Substance: LENALIDOMIDE
     Indication: Plasma cell myeloma
     Dosage: FREQUENCY-21D ON 7D OFF
     Route: 048
     Dates: start: 20230201

REACTIONS (2)
  - Nausea [Unknown]
  - Diarrhoea [Unknown]
